FAERS Safety Report 6681620-0 (Version None)
Quarter: 2010Q2

REPORT INFORMATION
  Report Type: 
  Country: None (occurrence: None)
  Receive Date: 20100414
  Receipt Date: 20100405
  Transmission Date: 20101027
  Serious: Yes (Other)
  Sender: FDA-Public Use
  Company Number: US-JNJCH-2010005219

PATIENT
  Age: 62 Year
  Sex: Female
  Weight: 68 kg

DRUGS (1)
  1. NEOSPORIN LT LIP TREATMENT [Suspect]
     Indication: LIP DRY
     Dosage: TEXT:ONE COAT ON UPPER AND TOP LIP ONCE DAILY
     Route: 061
     Dates: start: 20100205, end: 20100208

REACTIONS (3)
  - APPLICATION SITE BURN [None]
  - LIP BLISTER [None]
  - LIP PAIN [None]
